FAERS Safety Report 11692184 (Version 1)
Quarter: 2015Q4

REPORT INFORMATION
  Report Type: Spontaneous
  Country: KR (occurrence: KR)
  Receive Date: 20151103
  Receipt Date: 20151103
  Transmission Date: 20160304
  Serious: Yes (Hospitalization)
  Sender: FDA-Public Use
  Company Number: KR-AMGEN-KORCT2015114929

PATIENT
  Age: 45 Year
  Sex: Female
  Weight: 50.2 kg

DRUGS (15)
  1. DOXORUBICIN [Concomitant]
     Active Substance: DOXORUBICIN
     Indication: BREAST CANCER
     Dosage: 74.5 MG, UNK
     Route: 042
     Dates: start: 20150814, end: 20150814
  2. SANCUSO [Concomitant]
     Active Substance: GRANISETRON
     Dosage: 34.3 MG, UNK
     Route: 061
     Dates: start: 20150813
  3. G-LASTA [Suspect]
     Active Substance: PEGFILGRASTIM
     Dosage: 6 MG, 1X/3WEEKS
     Route: 058
     Dates: start: 20150926
  4. DOXORUBICIN [Concomitant]
     Active Substance: DOXORUBICIN
     Dosage: 75 MG, UNK
     Route: 042
     Dates: start: 20150925, end: 20150925
  5. DOCETAXEL. [Concomitant]
     Active Substance: DOCETAXEL
     Dosage: 112.5 MG, UNK
     Route: 042
     Dates: start: 20150925, end: 20150925
  6. G-LASTA [Suspect]
     Active Substance: PEGFILGRASTIM
     Dosage: 6 MG, 1X/3WEEKS
     Route: 058
     Dates: start: 20150905
  7. DOCETAXEL. [Concomitant]
     Active Substance: DOCETAXEL
     Indication: BREAST CANCER
     Dosage: 111.75 MG, UNK
     Route: 042
     Dates: start: 20150814, end: 20150814
  8. CYCLOPHOSPHAMIDE. [Concomitant]
     Active Substance: CYCLOPHOSPHAMIDE
     Dosage: 750 MG, UNK
     Route: 042
     Dates: start: 20150904, end: 20150904
  9. CYCLOPHOSPHAMIDE. [Concomitant]
     Active Substance: CYCLOPHOSPHAMIDE
     Dosage: 750 MG, UNK
     Route: 042
     Dates: start: 20150925, end: 20150925
  10. LEGALON [Concomitant]
     Active Substance: MILK THISTLE
     Dosage: 520 MG, UNK
     Route: 048
     Dates: start: 20150925, end: 20151014
  11. DOXORUBICIN [Concomitant]
     Active Substance: DOXORUBICIN
     Dosage: 75 MG, UNK
     Route: 042
     Dates: start: 20150904, end: 20150904
  12. CYCLOPHOSPHAMIDE. [Concomitant]
     Active Substance: CYCLOPHOSPHAMIDE
     Indication: BREAST CANCER
     Dosage: 745 MG, UNK
     Route: 042
     Dates: start: 20150814, end: 20150814
  13. G-LASTA [Suspect]
     Active Substance: PEGFILGRASTIM
     Indication: FEBRILE NEUTROPENIA
     Dosage: 6 MG, 1X/3WEEKS
     Route: 058
     Dates: start: 20150815
  14. DOCETAXEL. [Concomitant]
     Active Substance: DOCETAXEL
     Dosage: 112.5 MG, UNK
     Route: 042
     Dates: start: 20150904, end: 20150904
  15. GABAPENTIN. [Concomitant]
     Active Substance: GABAPENTIN
     Dosage: 100 MG, UNK
     Route: 048
     Dates: start: 20150814

REACTIONS (1)
  - Nausea [Recovered/Resolved]

NARRATIVE: CASE EVENT DATE: 20150927
